FAERS Safety Report 7266568-5 (Version None)
Quarter: 2011Q1

REPORT INFORMATION
  Report Type: 
  Country: None (occurrence: None)
  Receive Date: 20110131
  Receipt Date: 20110124
  Transmission Date: 20110831
  Serious: Yes (Disabling, Other)
  Sender: FDA-Public Use
  Company Number: US-ABBOTT-11P-163-0697710-00

PATIENT
  Sex: Male

DRUGS (5)
  1. MAXZIDE [Concomitant]
     Indication: HYPERTENSION
     Dosage: 75/50 MG, DAILY
  2. BIAXIN [Suspect]
     Indication: ULCER
  3. BIAXIN [Suspect]
     Indication: HELICOBACTER INFECTION
     Route: 048
     Dates: start: 20090126, end: 20090201
  4. FLAGYL [Concomitant]
     Indication: PRODUCT USED FOR UNKNOWN INDICATION
     Dates: start: 20090126, end: 20090201
  5. NICOTINE [Concomitant]
     Indication: PRODUCT USED FOR UNKNOWN INDICATION

REACTIONS (7)
  - ILL-DEFINED DISORDER [None]
  - FEAR [None]
  - AGEUSIA [None]
  - ANOSMIA [None]
  - DYSGEUSIA [None]
  - ANXIETY [None]
  - EMOTIONAL DISTRESS [None]
